FAERS Safety Report 9991478 (Version 1)
Quarter: 2014Q1

REPORT INFORMATION
  Report Type: Spontaneous
  Country: US (occurrence: None)
  Receive Date: 20140123
  Receipt Date: 20140123
  Transmission Date: 20141002
  Serious: Yes (Hospitalization)
  Sender: FDA-Public Use
  Company Number: UTC-040814

PATIENT
  Age: 42 Year
  Sex: Male
  Weight: 63.6 kg

DRUGS (3)
  1. REMODULIN (2.5 MILLIGRAM/MILLILITERS, INJECTION FOR INFUSION)(TREPROSTINIL SODIUM) [Suspect]
     Indication: COR PULMONALE CHRONIC
     Dosage: 57.6 UG/KG (0.04 UG/KG, 1 IN 1 MIN),INTRAVENOUS DRIP
     Route: 041
     Dates: start: 20030514
  2. COUMADIN (WARFARIN)(UNKNOWN) [Concomitant]
  3. REVATIO (SILDENAFIL CITRATE)(UNKNOWN) [Concomitant]
     Indication: COR PULMONALE CHRONIC

REACTIONS (2)
  - Device related infection [None]
  - Sepsis [None]
